FAERS Safety Report 26104499 (Version 1)
Quarter: 2025Q4

REPORT INFORMATION
  Report Type: Report from Study
  Country: US (occurrence: US)
  Receive Date: 20251130
  Receipt Date: 20251130
  Transmission Date: 20260118
  Serious: Yes (Hospitalization)
  Sender: ABBVIE
  Company Number: US-ABBVIE-6569807

PATIENT
  Age: 49 Year
  Sex: Female

DRUGS (2)
  1. SKYRIZI [Suspect]
     Active Substance: RISANKIZUMAB-RZAA
     Indication: Psoriasis
     Dosage: STRENGTH: 150MG/ML WEEK 0
     Route: 058
     Dates: start: 20250722, end: 20250722
  2. SKYRIZI [Suspect]
     Active Substance: RISANKIZUMAB-RZAA
     Dosage: STRENGTH: 150MG/ML WEEK 4, EVERY 12 WEEKS THEREAFTER(MISSED)
     Route: 058
     Dates: start: 20250819

REACTIONS (4)
  - Irritable bowel syndrome [Not Recovered/Not Resolved]
  - Large intestine infection [Recovered/Resolved]
  - Sciatica [Unknown]
  - Large intestine infection [Recovered/Resolved]

NARRATIVE: CASE EVENT DATE: 20250101
